FAERS Safety Report 8151099-0 (Version None)
Quarter: 2012Q1

REPORT INFORMATION
  Report Type: 
  Country: None (occurrence: None)
  Receive Date: 20120220
  Receipt Date: 20120209
  Transmission Date: 20120608
  Serious: Yes (Other)
  Sender: FDA-Public Use
  Company Number: CA-ASTRAZENECA-2012SE09074

PATIENT
  Age: 62 Year
  Sex: Female

DRUGS (3)
  1. METOPROLOL TARTRATE [Concomitant]
     Route: 048
  2. CLONIDINE [Concomitant]
     Route: 048
  3. ATACAND [Suspect]
     Indication: BLOOD PRESSURE
     Route: 048
     Dates: start: 20120201

REACTIONS (4)
  - RECTAL HAEMORRHAGE [None]
  - OROPHARYNGEAL BLISTERING [None]
  - SPUTUM ABNORMAL [None]
  - PHARYNGEAL OEDEMA [None]
